FAERS Safety Report 16571906 (Version 1)
Quarter: 2019Q3

REPORT INFORMATION
  Report Type: Spontaneous
  Country: US (occurrence: US)
  Receive Date: 20190714
  Receipt Date: 20190714
  Transmission Date: 20191004
  Serious: Yes (Other)
  Sender: FDA-Public Use
  Company Number: None

PATIENT
  Age: 80 Year
  Sex: Male
  Weight: 108 kg

DRUGS (10)
  1. COQ10 [Concomitant]
     Active Substance: UBIDECARENONE
  2. CONTOUR NEXT TEST STRIPS [Concomitant]
  3. TRADJENTA METROPOLIS [Concomitant]
  4. ASPIRIN. [Concomitant]
     Active Substance: ASPIRIN
  5. REPATHA [Suspect]
     Active Substance: EVOLOCUMAB
     Indication: BLOOD CHOLESTEROL INCREASED
     Dosage: ?          QUANTITY:1 INJECTION(S);OTHER FREQUENCY:BI-WEEKLY;?
     Route: 030
     Dates: start: 20190115, end: 20190620
  6. TRESIBA INSULIN PEN NEEDLES [Concomitant]
  7. TYLENOL 8HR [Concomitant]
     Active Substance: ACETAMINOPHEN
  8. LOSARTIN [Concomitant]
     Active Substance: LOSARTAN
  9. DOCUSATE SODIUM. [Concomitant]
     Active Substance: DOCUSATE SODIUM
  10. PROBIOTIC [Concomitant]
     Active Substance: PROBIOTICS NOS

REACTIONS (7)
  - Myalgia [None]
  - Blood glucose increased [None]
  - Influenza like illness [None]
  - Back pain [None]
  - Sudden onset of sleep [None]
  - Arthralgia [None]
  - Mobility decreased [None]

NARRATIVE: CASE EVENT DATE: 20190613
